FAERS Safety Report 4891661-1 (Version None)
Quarter: 2005Q4

REPORT INFORMATION
  Report Type: 
  Country: None (occurrence: None)
  Receive Date: 20051220
  Receipt Date: 20051102
  Transmission Date: 20060501
  Serious: Yes (Other)
  Sender: FDA-Public Use
  Company Number: 423564

PATIENT
  Sex: Female

DRUGS (4)
  1. BONIVA [Suspect]
     Indication: DRUG USE FOR UNKNOWN INDICATION
     Dosage: 150MG 1 PER MONTH ORAL
     Route: 048
     Dates: start: 20051101, end: 20051101
  2. MACRODANTIN [Concomitant]
  3. SYNTHROID [Concomitant]
  4. DETROL [Concomitant]

REACTIONS (4)
  - BONE PAIN [None]
  - HEADACHE [None]
  - MUSCLE SPASMS [None]
  - NAUSEA [None]
